FAERS Safety Report 23162003 (Version 2)
Quarter: 2023Q4

REPORT INFORMATION
  Report Type: Spontaneous
  Country: US (occurrence: US)
  Receive Date: 20231109
  Receipt Date: 20231116
  Transmission Date: 20240110
  Serious: Yes (Hospitalization, Other)
  Sender: FDA-Public Use
  Company Number: US-ALVOGEN-2023092498

PATIENT
  Age: 61 Year
  Sex: Female

DRUGS (1)
  1. TERIPARATIDE [Suspect]
     Active Substance: TERIPARATIDE
     Indication: Osteoporosis
     Dosage: EXPIRATION DATE: SEP-2024?5 DOSES WERE INJECTED PRIOR TO THE JAM.
     Dates: start: 2023, end: 20231027

REACTIONS (12)
  - Multiple fractures [Unknown]
  - Fall [Unknown]
  - Rhinorrhoea [Recovered/Resolved]
  - Nausea [Not Recovered/Not Resolved]
  - Headache [Not Recovered/Not Resolved]
  - Vomiting [Recovered/Resolved]
  - Overdose [Unknown]
  - Device operational issue [Unknown]
  - Device malfunction [Unknown]
  - Device use error [Unknown]
  - Product administration error [Unknown]
  - Device breakage [Unknown]

NARRATIVE: CASE EVENT DATE: 20230901
